FAERS Safety Report 12115191 (Version 2)
Quarter: 2016Q1

REPORT INFORMATION
  Report Type: Spontaneous
  Country: US (occurrence: US)
  Receive Date: 20160225
  Receipt Date: 20160226
  Transmission Date: 20160526
  Serious: No
  Sender: FDA-Public Use
  Company Number: US-ASTRAZENECA-2016SE15810

PATIENT
  Age: 702 Month
  Sex: Female
  Weight: 90.7 kg

DRUGS (6)
  1. ASPIRIN. [Concomitant]
     Active Substance: ASPIRIN
     Indication: ARTERIOSCLEROSIS
     Route: 048
     Dates: start: 20151215
  2. LIPITOR [Concomitant]
     Active Substance: ATORVASTATIN CALCIUM
     Indication: HYPERTENSION
     Route: 048
     Dates: start: 2013
  3. CRESTOR [Suspect]
     Active Substance: ROSUVASTATIN CALCIUM
     Indication: ARTERIOSCLEROSIS
     Route: 048
     Dates: start: 201512
  4. ASPIRIN. [Concomitant]
     Active Substance: ASPIRIN
     Indication: SYNCOPE
     Route: 048
     Dates: start: 20151215
  5. VITAMIN D [Concomitant]
     Active Substance: CHOLECALCIFEROL
     Indication: COELIAC DISEASE
     Route: 048
     Dates: start: 2013
  6. SYNTHROID [Concomitant]
     Active Substance: LEVOTHYROXINE SODIUM
     Indication: HYPOTHYROIDISM
     Route: 048

REACTIONS (7)
  - Arthritis [Unknown]
  - Fatigue [Unknown]
  - Mood altered [Unknown]
  - Coeliac disease [Not Recovered/Not Resolved]
  - Adverse event [Unknown]
  - Diarrhoea [Unknown]
  - Adverse drug reaction [Unknown]

NARRATIVE: CASE EVENT DATE: 201601
